FAERS Safety Report 6129938-4 (Version None)
Quarter: 2009Q1

REPORT INFORMATION
  Report Type: 
  Country: None (occurrence: None)
  Receive Date: 20090323
  Receipt Date: 20090323
  Transmission Date: 20090719
  Serious: Yes (Death)
  Sender: FDA-Public Use
  Company Number: None

PATIENT
  Sex: Male
  Weight: 32 kg

DRUGS (1)
  1. REMICADE [Suspect]
     Indication: COLITIS
     Dosage: 200 MG Q 8 WKS IV DRIP
     Route: 041
     Dates: start: 20080718, end: 20081223

REACTIONS (17)
  - BRAIN STEM SYNDROME [None]
  - CARDIAC ARREST [None]
  - HYPERPLASIA [None]
  - INSULIN RESISTANCE [None]
  - MYELITIS TRANSVERSE [None]
  - MYOCARDIAL INFARCTION [None]
  - NECROSIS [None]
  - PARALYSIS [None]
  - PLEOCYTOSIS [None]
  - PULMONARY OEDEMA [None]
  - RENAL DISORDER [None]
  - SCLERITIS [None]
  - SPINAL CORD DISORDER [None]
  - SPINAL CORD OEDEMA [None]
  - SPLENOMEGALY [None]
  - THYMUS ENLARGEMENT [None]
  - VASCULITIS [None]
